FAERS Safety Report 7320231-0 (Version None)
Quarter: 2011Q1

REPORT INFORMATION
  Report Type: 
  Country: None (occurrence: None)
  Receive Date: 20110228
  Receipt Date: 20110215
  Transmission Date: 20110831
  Serious: Yes (Life-Threatening, Other)
  Sender: FDA-Public Use
  Company Number: US-RB-021537-11

PATIENT
  Age: 62 Year
  Sex: Female

DRUGS (2)
  1. MUCINEX D [Suspect]
     Dosage: PATIENT STARTED DOSING ON 12-FEB-2011
     Route: 048
  2. DIABETES MEDICATION [Concomitant]

REACTIONS (8)
  - INSOMNIA [None]
  - ARRHYTHMIA [None]
  - TINNITUS [None]
  - FEELING ABNORMAL [None]
  - MOBILITY DECREASED [None]
  - HEART RATE INCREASED [None]
  - DYSPNOEA [None]
  - ATRIAL FIBRILLATION [None]
